FAERS Safety Report 6168584-3 (Version None)
Quarter: 2009Q2

REPORT INFORMATION
  Report Type: 
  Country: None (occurrence: None)
  Receive Date: 20090427
  Receipt Date: 20090424
  Transmission Date: 20091009
  Serious: Yes (Life-Threatening)
  Sender: FDA-Public Use
  Company Number: US-BRISTOL-MYERS SQUIBB COMPANY-14600720

PATIENT
  Sex: Male

DRUGS (1)
  1. DASATINIB [Suspect]
     Indication: PROSTATE CANCER

REACTIONS (1)
  - HYPONATRAEMIA [None]
